FAERS Safety Report 23442249 (Version 1)
Quarter: 2024Q1

REPORT INFORMATION
  Report Type: Spontaneous
  Country: None (occurrence: CN)
  Receive Date: 20240125
  Receipt Date: 20240125
  Transmission Date: 20240410
  Serious: Yes (Hospitalization)
  Sender: FDA-Public Use
  Company Number: CN-Jiangsu Hengrui Medicine Co., Ltd.-2151938

PATIENT
  Age: 75 Year
  Sex: Male
  Weight: 50 kg

DRUGS (3)
  1. IRINOTECAN HYDROCHLORIDE [Suspect]
     Active Substance: IRINOTECAN HYDROCHLORIDE
     Indication: Oesophageal carcinoma
     Route: 041
     Dates: start: 20240103, end: 20240103
  2. LEUCOVORIN CALCIUM [Suspect]
     Active Substance: LEUCOVORIN CALCIUM
     Route: 041
     Dates: start: 20240103, end: 20240103
  3. FLUOROURACIL [Suspect]
     Active Substance: FLUOROURACIL
     Dates: start: 20240103, end: 20240105

REACTIONS (1)
  - Hypovolaemic shock [Recovering/Resolving]

NARRATIVE: CASE EVENT DATE: 20240105
